FAERS Safety Report 8947300 (Version 1)
Quarter: 2012Q4

REPORT INFORMATION
  Report Type: 
  Country: BE (occurrence: BE)
  Receive Date: 20121205
  Receipt Date: 20121205
  Transmission Date: 20130627
  Serious: Yes (Other)
  Sender: FDA-Public Use
  Company Number: BE-ELI_LILLY_AND_COMPANY-BE201211007814

PATIENT
  Age: 18 Year
  Sex: Male

DRUGS (1)
  1. ZYPADHERA [Suspect]
     Dosage: 300 mg, UNK
     Route: 030

REACTIONS (6)
  - Mental disorder [Unknown]
  - Motor dysfunction [Unknown]
  - Tremor [Unknown]
  - Confusional state [Unknown]
  - Disorientation [Unknown]
  - Overdose [Unknown]
